FAERS Safety Report 6142948-6 (Version None)
Quarter: 2009Q2

REPORT INFORMATION
  Report Type: 
  Country: None (occurrence: None)
  Receive Date: 20090403
  Receipt Date: 20090324
  Transmission Date: 20091009
  Serious: Yes (Death, Life-Threatening, Hospitalization)
  Sender: FDA-Public Use
  Company Number: US-PFIZER INC-2004204430US

PATIENT
  Sex: Female
  Weight: 63 kg

DRUGS (14)
  1. SUNITINIB MALATE [Suspect]
     Indication: RENAL CELL CARCINOMA
     Dosage: 50 MG, 1X/DAY
     Route: 048
     Dates: start: 20040218, end: 20040316
  2. SENOKOT [Concomitant]
     Indication: CONSTIPATION
     Dates: start: 20040302, end: 20040309
  3. ADVAIR HFA [Concomitant]
     Indication: ASTHMA
     Dates: start: 20040127, end: 20040302
  4. VOLMAX [Concomitant]
     Indication: DYSPNOEA
     Dates: start: 20040217, end: 20040302
  5. MONTELUKAST [Concomitant]
     Indication: SEASONAL ALLERGY
     Dates: start: 20040127, end: 20040302
  6. PANTOPRAZOLE SODIUM [Concomitant]
     Indication: GASTROOESOPHAGEAL REFLUX DISEASE
     Dates: start: 20040210, end: 20040302
  7. COLACE [Concomitant]
     Indication: CONSTIPATION
     Dates: start: 20040309, end: 20040309
  8. XANAX [Concomitant]
     Indication: ANXIETY
     Route: 048
     Dates: start: 20040210
  9. MAGNESIUM HYDROXIDE TAB [Concomitant]
     Indication: CONSTIPATION
     Route: 048
     Dates: start: 20040309
  10. TUSSIN DM [Concomitant]
     Indication: COUGH
     Route: 048
     Dates: start: 20040127
  11. TYLENOL [Concomitant]
     Indication: PAIN
     Route: 048
     Dates: start: 20040127
  12. FISH OIL [Concomitant]
     Indication: PROPHYLAXIS
     Route: 048
     Dates: start: 20040127
  13. CELEBREX [Concomitant]
     Indication: INFLAMMATION
     Route: 048
     Dates: start: 20040210
  14. BENADRYL [Concomitant]
     Indication: HYPERSENSITIVITY
     Dates: start: 20040127, end: 20040217

REACTIONS (1)
  - MYOCARDIAL INFARCTION [None]
